FAERS Safety Report 14436013 (Version 1)
Quarter: 2018Q1

REPORT INFORMATION
  Report Type: Spontaneous
  Country: US (occurrence: US)
  Receive Date: 20180125
  Receipt Date: 20180125
  Transmission Date: 20180509
  Serious: No
  Sender: FDA-Public Use
  Company Number: US-UNITED THERAPEUTICS-UNT-2017-008800

PATIENT
  Sex: Female
  Weight: 68.48 kg

DRUGS (2)
  1. REMODULIN [Suspect]
     Active Substance: TREPROSTINIL
     Indication: PULMONARY ARTERIAL HYPERTENSION
     Dosage: 0.0505 ?G/KG, CONTINUING
     Route: 058
     Dates: start: 20151023
  2. REMODULIN [Suspect]
     Active Substance: TREPROSTINIL
     Dosage: 0.0485 ?G/KG, CONTINUING
     Route: 058

REACTIONS (2)
  - Weight decreased [Unknown]
  - Diarrhoea [Unknown]
